FAERS Safety Report 23886316 (Version 2)
Quarter: 2024Q3

REPORT INFORMATION
  Report Type: Spontaneous
  Country: US (occurrence: US)
  Receive Date: 20240522
  Receipt Date: 20240826
  Transmission Date: 20241017
  Serious: No
  Sender: APRECIA PHARMACEUTICALS
  Company Number: US-Aprecia Pharmaceuticals-APRE20240930

PATIENT
  Age: 91 Year
  Sex: Female

DRUGS (2)
  1. SPRITAM [Suspect]
     Active Substance: LEVETIRACETAM
     Indication: Seizure
     Dosage: UNKNOWN
     Route: 048
  2. SPRITAM [Suspect]
     Active Substance: LEVETIRACETAM
     Indication: Prophylaxis

REACTIONS (4)
  - Formication [Not Recovered/Not Resolved]
  - Pruritus [Not Recovered/Not Resolved]
  - Product blister packaging issue [None]
  - Wrong technique in product usage process [None]

NARRATIVE: CASE EVENT DATE: 20240501
